FAERS Safety Report 7109767-5 (Version None)
Quarter: 2010Q4

REPORT INFORMATION
  Report Type: 
  Country: None (occurrence: None)
  Receive Date: 20101116
  Receipt Date: 20101116
  Transmission Date: 20110411
  Serious: Yes (Other)
  Sender: FDA-Public Use
  Company Number: None

PATIENT
  Sex: Male
  Weight: 79.3795 kg

DRUGS (1)
  1. DORYX [Suspect]
     Indication: ACNE
     Dosage: DORYX 150MG 1 Q DAY PO
     Route: 048
     Dates: start: 20100916, end: 20101011

REACTIONS (1)
  - AUTOIMMUNE HEPATITIS [None]
